FAERS Safety Report 12606355 (Version 3)
Quarter: 2016Q3

REPORT INFORMATION
  Report Type: Spontaneous
  Country: IT (occurrence: IT)
  Receive Date: 20160729
  Receipt Date: 20160808
  Transmission Date: 20161109
  Serious: Yes (Hospitalization)
  Sender: FDA-Public Use
  Company Number: IT-TEVA-679716ISR

PATIENT
  Age: 84 Year
  Sex: Female

DRUGS (6)
  1. ALDACTAZIDE - 25 MG + 25 MG COMPRESSE [Concomitant]
     Indication: PRODUCT USED FOR UNKNOWN INDICATION
     Route: 048
  2. COUMADIN [Interacting]
     Active Substance: WARFARIN SODIUM
     Indication: ATRIAL FIBRILLATION
     Route: 048
     Dates: start: 20160101, end: 20160415
  3. TARGIN - 20 MG/10 MG COMPRESSE A RILASCIO PROLUNGATO? [Interacting]
     Active Substance: NALOXONE HYDROCHLORIDE\OXYCODONE HYDROCHLORIDE
     Indication: FRACTURE PAIN
     Dosage: 30 MILLIGRAM DAILY;
     Route: 048
     Dates: start: 20160410, end: 20160415
  4. LANOXIN - 0,250 MG COMPRESSE? [Concomitant]
     Indication: PRODUCT USED FOR UNKNOWN INDICATION
     Route: 048
  5. DICLOFENAC [Suspect]
     Active Substance: DICLOFENAC
     Indication: FRACTURE PAIN
     Route: 030
     Dates: start: 20160413, end: 20160415
  6. LIDOCAINE. [Concomitant]
     Active Substance: LIDOCAINE
     Indication: PRODUCT USED FOR UNKNOWN INDICATION
     Route: 062
     Dates: start: 20160413, end: 20160415

REACTIONS (3)
  - Drug interaction [Recovered/Resolved]
  - Hypocoagulable state [Recovered/Resolved]
  - Anaemia [Recovered/Resolved]

NARRATIVE: CASE EVENT DATE: 20160415
